FAERS Safety Report 5157610-6 (Version None)
Quarter: 2006Q4

REPORT INFORMATION
  Report Type: 
  Country: None (occurrence: None)
  Receive Date: 20061127
  Receipt Date: 20061117
  Transmission Date: 20070319
  Serious: Yes (Hospitalization)
  Sender: FDA-Public Use
  Company Number: NZ-MERCK-0611NZL00013

PATIENT
  Age: 69 Year
  Sex: Male

DRUGS (1)
  1. ZOCOR [Suspect]
     Indication: HYPERCHOLESTEROLAEMIA
     Route: 048
     Dates: end: 20060101

REACTIONS (4)
  - ABDOMINAL PAIN [None]
  - HEPATOCELLULAR DAMAGE [None]
  - LETHARGY [None]
  - MALAISE [None]
